FAERS Safety Report 7036139-4 (Version None)
Quarter: 2010Q4

REPORT INFORMATION
  Report Type: 
  Country: None (occurrence: None)
  Receive Date: 20101008
  Receipt Date: 20100608
  Transmission Date: 20110411
  Serious: No
  Sender: FDA-Public Use
  Company Number: US-BRISTOL-MYERS SQUIBB COMPANY-14977540

PATIENT
  Age: 74 Year
  Sex: Female
  Weight: 76 kg

DRUGS (3)
  1. AVAPRO [Suspect]
     Indication: HYPERTENSION
     Dates: start: 20070101
  2. WARFARIN [Concomitant]
  3. LOPRESSOR [Concomitant]

REACTIONS (2)
  - DYSPHAGIA [None]
  - WEIGHT DECREASED [None]
